FAERS Safety Report 23592640 (Version 3)
Quarter: 2025Q2

REPORT INFORMATION
  Report Type: Spontaneous
  Country: US (occurrence: US)
  Receive Date: 20240304
  Receipt Date: 20250408
  Transmission Date: 20250717
  Serious: No
  Sender: PFIZER
  Company Number: US-PFIZER INC-PV202400028360

PATIENT
  Age: 64 Year
  Sex: Female
  Weight: 61.23 kg

DRUGS (5)
  1. PAXLOVID [Suspect]
     Active Substance: NIRMATRELVIR\RITONAVIR
     Indication: COVID-19 treatment
     Dosage: 1 DF, DAILY
     Dates: start: 202212, end: 202212
  2. LOSARTAN [Concomitant]
     Active Substance: LOSARTAN
  3. GLUCOSAMINE [Concomitant]
     Active Substance: GLUCOSAMINE
  4. VITAMIN D3 [Concomitant]
     Active Substance: CHOLECALCIFEROL
  5. FISH OIL [Concomitant]
     Active Substance: FISH OIL

REACTIONS (1)
  - Incorrect dose administered [Unknown]
